FAERS Safety Report 6165212-8 (Version None)
Quarter: 2009Q2

REPORT INFORMATION
  Report Type: 
  Country: None (occurrence: None)
  Receive Date: 20090423
  Receipt Date: 20090414
  Transmission Date: 20091009
  Serious: Yes (Hospitalization)
  Sender: FDA-Public Use
  Company Number: JP-PFIZER INC-2009193485

PATIENT

DRUGS (1)
  1. ZITHROMAX [Suspect]
     Indication: PERIODONTITIS
     Dosage: UNK
     Route: 048
     Dates: start: 20090401

REACTIONS (2)
  - DYSPNOEA [None]
  - TREMOR [None]
